FAERS Safety Report 9949020 (Version 1)
Quarter: 2014Q1

REPORT INFORMATION
  Report Type: Spontaneous
  Country: US (occurrence: None)
  Receive Date: 20140122
  Receipt Date: 20140122
  Transmission Date: 20141002
  Serious: No
  Sender: FDA-Public Use
  Company Number: AEGR000168

PATIENT
  Age: 78 Year
  Sex: Female
  Weight: 49.9 kg

DRUGS (15)
  1. JUXTAPID (LOMITAPIDE) CAPSULE, 5MG [Suspect]
     Indication: TYPE IIA HYPERLIPIDAEMIA
     Route: 048
     Dates: start: 20130918
  2. SYNTHROID (LEVOTHYROXINE SODIUM) [Concomitant]
  3. BYSTOLIC (NEBIVOLOL HYDROCHLORIDE) [Concomitant]
  4. ASPIRIN (ACETYLSALICYLIC ACID) [Concomitant]
  5. FAMVIR (FAMCICLOVIR) [Concomitant]
  6. COQ10 (UBIDECARENONE) [Concomitant]
  7. VITAMIN E (TOCOPHERYL ACID SUCCINATE) [Concomitant]
  8. FOLIC ACID (FOLIC ACID) [Concomitant]
  9. VITAMIN D3 (COLECALCIFEROL) [Concomitant]
  10. VITAMIN A (RETINOL) [Concomitant]
  11. CRANBERRY (CRANBERRY) [Concomitant]
  12. PROBIOTICS NOS (PROBIOTICS NOS) [Concomitant]
  13. CALCIUM (CALCIUM) [Concomitant]
  14. VITAMIN C (ASCORBIC ACID) [Concomitant]
  15. BIOTIN (BIOTIN) [Concomitant]

REACTIONS (1)
  - Muscle spasms [None]
